FAERS Safety Report 14432358 (Version 1)
Quarter: 2018Q1

REPORT INFORMATION
  Report Type: Spontaneous
  Country: US (occurrence: US)
  Receive Date: 20180124
  Receipt Date: 20180124
  Transmission Date: 20180509
  Serious: Yes (Death)
  Sender: FDA-Public Use
  Company Number: US-PFIZER INC-2017545515

PATIENT
  Age: 43 Year
  Sex: Female

DRUGS (1)
  1. DILANTIN [Suspect]
     Active Substance: PHENYTOIN
     Dosage: 300 MG, 2X/DAY [3 CAPSULES TWICE A DAY ]
     Dates: start: 20171116

REACTIONS (2)
  - Drug dispensing error [Unknown]
  - Death [Fatal]
